FAERS Safety Report 19079514 (Version 1)
Quarter: 2021Q1

REPORT INFORMATION
  Report Type: Spontaneous
  Country: US (occurrence: US)
  Receive Date: 20210331
  Receipt Date: 20210331
  Transmission Date: 20210420
  Serious: No
  Sender: FDA-Public Use
  Company Number: US-TEVA-2021-US-1895354

PATIENT
  Age: 72 Year
  Sex: Female
  Weight: 70.03 kg

DRUGS (5)
  1. ALPHALOPIC ACID [Concomitant]
     Indication: NEUROPATHY PERIPHERAL
  2. IBRANCE [Suspect]
     Active Substance: PALBOCICLIB
     Indication: BREAST CANCER FEMALE
     Route: 065
     Dates: start: 2016, end: 20210211
  3. LETROZOLE. [Suspect]
     Active Substance: LETROZOLE
     Route: 065
     Dates: start: 2017
  4. ZYRTEC [Concomitant]
     Active Substance: CETIRIZINE HYDROCHLORIDE
  5. B50 [Concomitant]

REACTIONS (1)
  - Eye disorder [Unknown]
